FAERS Safety Report 11856668 (Version 1)
Quarter: 2015Q4

REPORT INFORMATION
  Report Type: Spontaneous
  Country: US (occurrence: US)
  Receive Date: 20151221
  Receipt Date: 20151221
  Transmission Date: 20160305
  Serious: Yes (Hospitalization)
  Sender: FDA-Public Use
  Company Number: US-BAYER-2015-488012

PATIENT
  Sex: Male

DRUGS (1)
  1. BAYER GENUINE ASPIRIN [Suspect]
     Active Substance: ASPIRIN
     Route: 048

REACTIONS (2)
  - Vomiting [Unknown]
  - Poisoning [Unknown]
